FAERS Safety Report 6308907-5 (Version None)
Quarter: 2009Q3

REPORT INFORMATION
  Report Type: 
  Country: None (occurrence: None)
  Receive Date: 20090813
  Receipt Date: 20090429
  Transmission Date: 20100115
  Serious: No
  Sender: FDA-Public Use
  Company Number: US-ALLERGAN-0905012US

PATIENT
  Age: 71 Year
  Sex: Female

DRUGS (6)
  1. COMBIGAN [Suspect]
     Indication: GLAUCOMA
     Dosage: 1 GTT, BID
     Route: 047
     Dates: start: 20081218, end: 20090312
  2. TRAVATAN Z [Concomitant]
     Indication: GLAUCOMA
     Dosage: 1 GTT, QHS
     Route: 047
  3. METOPROLOL SUCCINATE [Concomitant]
  4. LIPITOR [Concomitant]
  5. ACTONEL [Concomitant]
  6. ADVAIR HFA [Concomitant]

REACTIONS (1)
  - EYELID PTOSIS [None]
